FAERS Safety Report 15272102 (Version 2)
Quarter: 2018Q3

REPORT INFORMATION
  Report Type: Spontaneous
  Country: US (occurrence: US)
  Receive Date: 20180813
  Receipt Date: 20180910
  Transmission Date: 20181010
  Serious: No
  Sender: FDA-Public Use
  Company Number: US-ASTRAZENECA-2018SF01559

PATIENT
  Age: 82 Year
  Sex: Female
  Weight: 68 kg

DRUGS (7)
  1. DUONEB [Concomitant]
     Active Substance: ALBUTEROL SULFATE\IPRATROPIUM BROMIDE
     Indication: WHEEZING
     Dosage: 0.5MG AS REQUIRED
     Dates: start: 20180504
  2. COMBIVENT [Concomitant]
     Active Substance: ALBUTEROL SULFATE\IPRATROPIUM BROMIDE
     Indication: WHEEZING
     Dosage: 20100.0UG AS REQUIRED
     Dates: start: 20180504
  3. DUONEB [Concomitant]
     Active Substance: ALBUTEROL SULFATE\IPRATROPIUM BROMIDE
     Indication: HYPOXIA
     Dosage: 0.5MG AS REQUIRED
     Dates: start: 20180504
  4. DUONEB [Concomitant]
     Active Substance: ALBUTEROL SULFATE\IPRATROPIUM BROMIDE
     Indication: DYSPNOEA
     Dosage: 0.5MG AS REQUIRED
     Dates: start: 20180504
  5. PULMICORT FLEXHALER [Suspect]
     Active Substance: BUDESONIDE
     Indication: ASTHMA
     Route: 055
     Dates: start: 20180801
  6. COMBIVENT [Concomitant]
     Active Substance: ALBUTEROL SULFATE\IPRATROPIUM BROMIDE
     Indication: COUGH
     Dosage: 20100.0UG AS REQUIRED
     Dates: start: 20180504
  7. PULMICORT FLEXHALER [Suspect]
     Active Substance: BUDESONIDE
     Indication: ASTHMA
     Route: 055

REACTIONS (4)
  - Intentional device misuse [Not Recovered/Not Resolved]
  - Device defective [Not Recovered/Not Resolved]
  - Device failure [Unknown]
  - Dyspnoea [Unknown]

NARRATIVE: CASE EVENT DATE: 2018
